FAERS Safety Report 25072708 (Version 1)
Quarter: 2025Q1

REPORT INFORMATION
  Report Type: Spontaneous
  Country: CN (occurrence: CN)
  Receive Date: 20250313
  Receipt Date: 20250313
  Transmission Date: 20250409
  Serious: Yes (Death)
  Sender: ABBVIE
  Company Number: CN-PFIZER INC-PV202500024141

PATIENT
  Age: 60 Year
  Sex: Female

DRUGS (1)
  1. AVIBACTAM SODIUM [Suspect]
     Active Substance: AVIBACTAM SODIUM
     Indication: Product used for unknown indication
     Route: 065
     Dates: start: 20250220, end: 20250227

REACTIONS (1)
  - Death [Fatal]
